FAERS Safety Report 11780801 (Version 2)
Quarter: 2016Q1

REPORT INFORMATION
  Report Type: Report from Study
  Country: ES (occurrence: ES)
  Receive Date: 20151126
  Receipt Date: 20160222
  Transmission Date: 20160525
  Serious: Yes (Other)
  Sender: FDA-Public Use
  Company Number: ES-ROCHE-1662622

PATIENT

DRUGS (1)
  1. TOCILIZUMAB [Suspect]
     Active Substance: TOCILIZUMAB
     Indication: AORTITIS
     Route: 065

REACTIONS (7)
  - Systemic lupus erythematosus [Unknown]
  - Hypotension [Unknown]
  - Drug ineffective [Unknown]
  - Thrombocytopenia [Unknown]
  - Neutropenia [Unknown]
  - Pneumonia [Unknown]
  - Cytomegalovirus infection [Unknown]
